FAERS Safety Report 7205783-3 (Version None)
Quarter: 2010Q4

REPORT INFORMATION
  Report Type: 
  Country: None (occurrence: None)
  Receive Date: 20101231
  Receipt Date: 20101220
  Transmission Date: 20110411
  Serious: Yes (Death, Other)
  Sender: FDA-Public Use
  Company Number: JP-PFIZER INC-2010181713

PATIENT
  Sex: Male

DRUGS (13)
  1. CISPLATIN [Suspect]
     Indication: T-CELL LYMPHOMA REFRACTORY
  2. DOXORUBICIN HCL [Suspect]
     Indication: T-CELL LYMPHOMA REFRACTORY
  3. METHOTREXATE SODIUM [Suspect]
     Indication: T-CELL LYMPHOMA REFRACTORY
  4. CARBOPLATIN [Suspect]
     Indication: T-CELL LYMPHOMA REFRACTORY
  5. CYCLOPHOSPHAMIDE [Suspect]
     Indication: T-CELL LYMPHOMA REFRACTORY
  6. VINCRISTINE SULFATE [Suspect]
     Indication: T-CELL LYMPHOMA REFRACTORY
  7. DEXAMETHASONE [Suspect]
     Indication: T-CELL LYMPHOMA REFRACTORY
     Dosage: 10 MG
  8. CYTARABINE [Suspect]
     Indication: T-CELL LYMPHOMA REFRACTORY
  9. ETOPOSIDE [Suspect]
     Indication: T-CELL LYMPHOMA REFRACTORY
  10. PREDNISOLONE [Suspect]
     Indication: T-CELL LYMPHOMA REFRACTORY
  11. IFOSFAMIDE [Suspect]
     Indication: T-CELL LYMPHOMA REFRACTORY
  12. GEMCITABINE [Suspect]
     Indication: T-CELL LYMPHOMA REFRACTORY
  13. IRINOTECAN [Suspect]
     Indication: T-CELL LYMPHOMA REFRACTORY
     Dosage: 30 MG/M2, CYCLIC

REACTIONS (6)
  - DISEASE PROGRESSION [None]
  - DYSPNOEA [None]
  - POLYOMAVIRUS-ASSOCIATED NEPHROPATHY [None]
  - PYREXIA [None]
  - RENAL FAILURE ACUTE [None]
  - T-CELL LYMPHOMA REFRACTORY [None]
